FAERS Safety Report 10239563 (Version 2)
Quarter: 2014Q3

REPORT INFORMATION
  Report Type: Spontaneous
  Country: DE (occurrence: None)
  Receive Date: 20140612
  Receipt Date: 20140806
  Transmission Date: 20150326
  Serious: Yes (Hospitalization)
  Sender: FDA-Public Use
  Company Number: TTX201400076

PATIENT
  Sex: Male

DRUGS (11)
  1. RITUXIMAB (RITUXIMAB) [Concomitant]
     Active Substance: RITUXIMAB
  2. PEGFILGRASTIM (PEGFILGRASTIM) [Concomitant]
     Active Substance: PEGFILGRASTIM
  3. PANTOPRAZOL (PANTOPRAZOLE SODIUM) [Concomitant]
  4. ACIC (ACICLOVIR) [Concomitant]
  5. CYCLOPHOSPHAMIDE (CYCLOPHOSPHAMIDE) [Suspect]
     Active Substance: CYCLOPHOSPHAMIDE
     Indication: NON-HODGKIN^S LYMPHOMA
     Route: 042
     Dates: start: 20140520, end: 20140520
  6. COTRIM FORTE EU RHO (SULFAMETHOXAZOLE, TRIMETHOPRIM) [Concomitant]
  7. DEKRISTOL (COLECALCIFEROL) [Concomitant]
     Active Substance: CHOLECALCIFEROL
  8. DOXORUBICIN [Suspect]
     Active Substance: DOXORUBICIN
     Indication: NON-HODGKIN^S LYMPHOMA
     Route: 042
     Dates: start: 20140520, end: 20140520
  9. PREDNISOLONE (PREDNISOLONE ACETATE) [Suspect]
     Active Substance: PREDNISOLONE ACETATE
     Indication: NON-HODGKIN^S LYMPHOMA
     Dosage: THURSDAY AND TUESDAY
     Route: 048
     Dates: start: 20140520, end: 20140520
  10. VINCRISTINE SULFATE LIPOSOME (VINCRISTINE SULFATE LIPOSOME 2.25 MG/M2) INJECTION, 0.16MG/ML [Suspect]
     Active Substance: VINCRISTINE SULFATE
     Indication: ACUTE LYMPHOCYTIC LEUKAEMIA
     Route: 042
     Dates: start: 20140520, end: 20140520
  11. LAMIVUDINE (LAMIVUDINE) [Concomitant]
     Active Substance: LAMIVUDINE

REACTIONS (8)
  - Non-Hodgkin^s lymphoma [None]
  - Neutropenia [None]
  - Pneumonia [None]
  - Performance status decreased [None]
  - Peripheral sensory neuropathy [None]
  - Disease progression [None]
  - Hyperosmolar state [None]
  - Ataxia [None]

NARRATIVE: CASE EVENT DATE: 20140523
